FAERS Safety Report 9251261 (Version 1)
Quarter: 2013Q1

REPORT INFORMATION
  Report Type: Spontaneous
  Country: US (occurrence: None)
  Receive Date: 20130305
  Receipt Date: 20130305
  Transmission Date: 20140127
  Serious: Yes (Hospitalization, Other)
  Sender: FDA-Public Use
  Company Number: 163-21880-12082032

PATIENT
  Age: 82 Year
  Sex: Male
  Weight: 69.4 kg

DRUGS (17)
  1. REVLIMID [Suspect]
     Indication: PLASMA CELL MYELOMA
     Dosage: 21 IN 28 D
     Route: 048
     Dates: start: 20120808, end: 20120820
  2. LEVOTHYROXINE SODIUM(LEVOTHYROXINE SODIUM)(UNKNOWN) [Concomitant]
  3. HYDROMORPHONE HCL (HYDROMORPHONE? HYDROCHLORIDE) [Concomitant]
  4. TAMSULOSIN HCL(TAMSULOSIN HYDROCHLORIDE)(UNKNOWN) [Concomitant]
  5. ALLOPURINOL (ALLOPURINOL)(UNKNOWN) [Concomitant]
  6. ASA(ACETYLSALICYLIC ACID)(UNKNOWN) [Concomitant]
  7. DECADRON(DEXAMETHASONE)(UNKNOWN) [Concomitant]
  8. FINASTERIDE(FINASTERIDE) (UNKNOWN) [Concomitant]
  9. GLIPIZIDE(GLIPIZIDE)(UNKNOWN) [Concomitant]
  10. METFORMIN(METFORMIN)(UNKNOWN) [Concomitant]
  11. OMEPRAZOLE(OMEPRAZOLE)(UNKNOWN) [Concomitant]
  12. SIMVASTATIN(SIMVASTATIN) [Concomitant]
  13. SODIUM BICARBONATE(SODIUM BICARBONATE)(UNKNOWN) [Concomitant]
  14. VITAMIN D(ERGOCALCIFEROL)(UNKNOWN) [Concomitant]
  15. DILAUDID(HYDROMORPHONE HYDROCHLORIDE) (UNKNOWN) [Concomitant]
  16. LEVAQUIN(LEVOFLOXACIN) (UNKNOWN) [Concomitant]
  17. METOPROLOL (METOPROLOL) (UNKNOWN) [Concomitant]

REACTIONS (5)
  - Kidney infection [None]
  - Dehydration [None]
  - Gout [None]
  - Pyrexia [None]
  - Cellulitis [None]
